FAERS Safety Report 8283587-0 (Version None)
Quarter: 2012Q2

REPORT INFORMATION
  Report Type: 
  Country: None (occurrence: None)
  Receive Date: 20120413
  Receipt Date: 20120404
  Transmission Date: 20120825
  Serious: Yes (Hospitalization)
  Sender: FDA-Public Use
  Company Number: US-BAYER-2012-033917

PATIENT
  Age: 70 Year
  Sex: Male

DRUGS (1)
  1. NEXAVAR [Suspect]
     Indication: BILE DUCT CANCER
     Dosage: 400 MG, BID
     Route: 048
     Dates: start: 20111203

REACTIONS (6)
  - WEIGHT INCREASED [None]
  - FALL [None]
  - NAUSEA [None]
  - ASTHENIA [None]
  - DECREASED APPETITE [None]
  - MUSCULAR WEAKNESS [None]
